FAERS Safety Report 4421244-9 (Version None)
Quarter: 2004Q3

REPORT INFORMATION
  Report Type: 
  Country: None (occurrence: None)
  Receive Date: 20040707
  Receipt Date: 20040511
  Transmission Date: 20050211
  Serious: No
  Sender: FDA-Public Use
  Company Number: SU-2004-002353

PATIENT
  Age: 77 Year
  Sex: Male
  Weight: 78.0187 kg

DRUGS (4)
  1. BENICAR HCT [Suspect]
     Indication: HYPERTENSION
     Dosage: 40.125 MG QD PO
     Route: 048
     Dates: start: 20040414
  2. ALLOPURINOL [Concomitant]
  3. ACIPHEX [Concomitant]
  4. ASPIRIN [Concomitant]

REACTIONS (3)
  - COUGH [None]
  - LACRIMATION INCREASED [None]
  - RHINORRHOEA [None]
